FAERS Safety Report 8289463-1 (Version None)
Quarter: 2012Q2

REPORT INFORMATION
  Report Type: 
  Country: None (occurrence: None)
  Receive Date: 20120417
  Receipt Date: 20120409
  Transmission Date: 20120825
  Serious: Yes (Hospitalization)
  Sender: FDA-Public Use
  Company Number: US-ASTRAZENECA-2012SE23128

PATIENT
  Age: 81 Year
  Sex: Male
  Weight: 77.1 kg

DRUGS (6)
  1. SEROQUEL [Suspect]
     Indication: DEPRESSION
     Route: 048
     Dates: start: 20110101
  2. SEROQUEL [Suspect]
     Indication: SLEEP DISORDER
     Route: 048
     Dates: start: 20110101
  3. LISINOPRIL [Concomitant]
  4. SEROQUEL [Suspect]
     Indication: ANXIETY
     Route: 048
     Dates: start: 20110101
  5. REMERON [Concomitant]
  6. HYDROCODONE [Concomitant]

REACTIONS (3)
  - ENTEROCOCCAL INFECTION [None]
  - ABSCESS [None]
  - WEIGHT DECREASED [None]
